FAERS Safety Report 16531703 (Version 3)
Quarter: 2019Q4

REPORT INFORMATION
  Report Type: Spontaneous
  Country: GB (occurrence: GB)
  Receive Date: 20190704
  Receipt Date: 20191129
  Transmission Date: 20200122
  Serious: Yes (Death, Hospitalization)
  Sender: FDA-Public Use
  Company Number: GB-AUROBINDO-AUR-APL-2019-037280

PATIENT
  Age: 82 Year
  Sex: Female

DRUGS (5)
  1. PARACETAMOL [Concomitant]
     Active Substance: ACETAMINOPHEN
     Indication: PAIN
     Dosage: 3 GRAM, ONCE A DAY,2-3G ONCE A DAY
     Route: 065
  2. RIVAROXABAN [Suspect]
     Active Substance: RIVAROXABAN
     Indication: ATRIAL FIBRILLATION
     Dosage: 15 MILLIGRAM, ONCE A DAY
     Route: 065
  3. FLECAINIDE [Suspect]
     Active Substance: FLECAINIDE
     Dosage: 100 MILLIGRAM, ONCE A DAY
     Route: 065
  4. DENOSUMAB [Suspect]
     Active Substance: DENOSUMAB
     Indication: PRODUCT USED FOR UNKNOWN INDICATION
     Dosage: UNK 6 MONTHLY
     Route: 065
  5. FLECAINIDE [Suspect]
     Active Substance: FLECAINIDE
     Indication: PRODUCT USED FOR UNKNOWN INDICATION
     Dosage: 50 MILLIGRAM, TWO TIMES A DAY
     Route: 065

REACTIONS (14)
  - Pericardial haemorrhage [Fatal]
  - Condition aggravated [Fatal]
  - Nausea [Fatal]
  - Acute kidney injury [Fatal]
  - Blood creatinine increased [Fatal]
  - Constipation [Fatal]
  - Blood pressure increased [Fatal]
  - General physical health deterioration [Fatal]
  - Cardiac arrest [Fatal]
  - C-reactive protein increased [Fatal]
  - Chest pain [Fatal]
  - Vomiting [Fatal]
  - Dehydration [Fatal]
  - Urine output decreased [Fatal]
